FAERS Safety Report 21338701 (Version 2)
Quarter: 2022Q4

REPORT INFORMATION
  Report Type: Spontaneous
  Country: US (occurrence: US)
  Receive Date: 20220915
  Receipt Date: 20221001
  Transmission Date: 20230113
  Serious: Yes (Hospitalization, Other)
  Sender: FDA-Public Use
  Company Number: US-TEVA-2022-US-2071886

PATIENT
  Age: 57 Year
  Sex: Male

DRUGS (5)
  1. EVEROLIMUS [Suspect]
     Active Substance: EVEROLIMUS
     Indication: Metastatic renal cell carcinoma
     Route: 048
  2. PEMBROLIZUMAB [Suspect]
     Active Substance: PEMBROLIZUMAB
     Indication: Metastatic renal cell carcinoma
     Route: 065
  3. AXITINIB [Suspect]
     Active Substance: AXITINIB
     Indication: Metastatic renal cell carcinoma
     Route: 048
  4. CABOZANTINIB [Suspect]
     Active Substance: CABOZANTINIB
     Indication: Metastatic renal cell carcinoma
     Route: 048
  5. LENVATINIB [Suspect]
     Active Substance: LENVATINIB
     Indication: Metastatic renal cell carcinoma
     Route: 048

REACTIONS (2)
  - Glomerulonephritis membranous [Recovering/Resolving]
  - Drug ineffective [Unknown]
